FAERS Safety Report 6610109-X (Version None)
Quarter: 2010Q1

REPORT INFORMATION
  Report Type: 
  Country: None (occurrence: None)
  Receive Date: 20100302
  Receipt Date: 20100219
  Transmission Date: 20100710
  Serious: Yes (Other)
  Sender: FDA-Public Use
  Company Number: JP-PFIZER INC-2010022970

PATIENT
  Age: 70 Year
  Sex: Male

DRUGS (3)
  1. CARDENALIN [Suspect]
     Indication: HYPERTENSION
     Dosage: 0.5 MG, 1X/DAY
     Route: 048
  2. WARFARIN POTASSIUM [Concomitant]
     Dosage: UNK
     Route: 048
  3. EPADEL [Concomitant]
     Dosage: UNK

REACTIONS (1)
  - TONGUE NEOPLASM [None]
